FAERS Safety Report 5527894-0 (Version None)
Quarter: 2007Q4

REPORT INFORMATION
  Report Type: 
  Country: None (occurrence: None)
  Receive Date: 20071123
  Receipt Date: 20071109
  Transmission Date: 20080405
  Serious: Yes (Other)
  Sender: FDA-Public Use
  Company Number: 2007SP022787

PATIENT
  Sex: Female

DRUGS (1)
  1. DESLORATADINE [Suspect]
     Indication: RHINITIS ALLERGIC
     Dosage: 5 MG; QD; PO
     Route: 048
     Dates: start: 20071024, end: 20071024

REACTIONS (4)
  - DIZZINESS [None]
  - ILLUSION [None]
  - PARAESTHESIA [None]
  - TACHYCARDIA [None]
